FAERS Safety Report 12650764 (Version 1)
Quarter: 2016Q3

REPORT INFORMATION
  Report Type: Spontaneous
  Country: US (occurrence: US)
  Receive Date: 20160815
  Receipt Date: 20160815
  Transmission Date: 20161109
  Serious: No
  Sender: FDA-Public Use
  Company Number: US-JAZZ-2016-US-004845

PATIENT
  Sex: Male

DRUGS (20)
  1. ZALEPLON. [Suspect]
     Active Substance: ZALEPLON
     Indication: PRODUCT USED FOR UNKNOWN INDICATION
  2. OMEGA 3 FISH OIL [Concomitant]
     Active Substance: FISH OIL\OMEGA-3 FATTY ACIDS
  3. VALPROIC ACID. [Concomitant]
     Active Substance: VALPROIC ACID
  4. ZANTAC [Concomitant]
     Active Substance: RANITIDINE HYDROCHLORIDE
  5. COENZYME Q10 [Concomitant]
     Active Substance: UBIDECARENONE
  6. XYREM [Suspect]
     Active Substance: SODIUM OXYBATE
     Indication: INSOMNIA
     Dosage: 2.25 G, BID
     Route: 048
     Dates: start: 201002, end: 201002
  7. XYREM [Suspect]
     Active Substance: SODIUM OXYBATE
     Dosage: 3 G, BID
     Route: 048
     Dates: start: 201506
  8. ESZOPICLONE. [Suspect]
     Active Substance: ESZOPICLONE
     Indication: PRODUCT USED FOR UNKNOWN INDICATION
  9. ZOLPIDEM TARTRATE. [Suspect]
     Active Substance: ZOLPIDEM TARTRATE
     Indication: PRODUCT USED FOR UNKNOWN INDICATION
  10. DIAZEPAM. [Concomitant]
     Active Substance: DIAZEPAM
  11. XYREM [Suspect]
     Active Substance: SODIUM OXYBATE
     Dosage: DOSE ADJUSTMENTS
     Route: 048
  12. NIACIN. [Concomitant]
     Active Substance: NIACIN
  13. VITAMIN B2 [Concomitant]
     Active Substance: RIBOFLAVIN
  14. CIPRO [Concomitant]
     Active Substance: CIPROFLOXACIN HYDROCHLORIDE
  15. VITAMIN E [Concomitant]
     Active Substance: .ALPHA.-TOCOPHEROL
  16. PROBIOTIC [Concomitant]
     Active Substance: PROBIOTICS NOS
  17. TRANSDERM SCOP [Concomitant]
     Active Substance: SCOPOLAMINE
  18. METRONIDAZOLE. [Concomitant]
     Active Substance: METRONIDAZOLE
  19. PAXIL [Concomitant]
     Active Substance: PAROXETINE HYDROCHLORIDE
  20. VITAMIN D3 [Concomitant]
     Active Substance: CHOLECALCIFEROL

REACTIONS (2)
  - Anxiety [Unknown]
  - Withdrawal syndrome [Unknown]
